FAERS Safety Report 16393778 (Version 1)
Quarter: 2019Q2

REPORT INFORMATION
  Report Type: Spontaneous
  Country: IT (occurrence: IT)
  Receive Date: 20190605
  Receipt Date: 20190605
  Transmission Date: 20190711
  Serious: Yes (Hospitalization)
  Sender: FDA-Public Use
  Company Number: IT-PFIZER INC-2019239137

PATIENT
  Age: 77 Year
  Sex: Female

DRUGS (6)
  1. CONGESCOR [Concomitant]
     Active Substance: BISOPROLOL
     Dosage: UNK
  2. CORDARONE [Suspect]
     Active Substance: AMIODARONE HYDROCHLORIDE
     Indication: ARRHYTHMIA
     Dosage: 200 MG, QD
     Route: 048
     Dates: start: 20190401, end: 20190520
  3. BIFRIL [Concomitant]
     Active Substance: ZOFENOPRIL
     Dosage: UNK UNK, UNK
  4. ARIXTRA [Suspect]
     Active Substance: FONDAPARINUX SODIUM
     Indication: PULMONARY EMBOLISM
     Dosage: 2.5 MG, QD (2.5 MG/0.5 ML)
     Route: 058
     Dates: start: 20190516, end: 20190520
  5. OMEPRAZOLO DOC [Concomitant]
     Dosage: UNK UNK, UNK
  6. BENTELAN [Suspect]
     Active Substance: BETAMETHASONE SODIUM PHOSPHATE
     Indication: CHRONIC OBSTRUCTIVE PULMONARY DISEASE
     Dosage: 1.5 MG, QD (1.5 MG/ 2 ML)
     Route: 030
     Dates: start: 20190516, end: 20190519

REACTIONS (2)
  - Melaena [Recovering/Resolving]
  - Rectal haemorrhage [Recovering/Resolving]

NARRATIVE: CASE EVENT DATE: 20190520
